FAERS Safety Report 8198372-8 (Version None)
Quarter: 2012Q1

REPORT INFORMATION
  Report Type: 
  Country: None (occurrence: None)
  Receive Date: 20120309
  Receipt Date: 20120302
  Transmission Date: 20120608
  Serious: Yes (Hospitalization, Other)
  Sender: FDA-Public Use
  Company Number: PHEH2009US04496

PATIENT
  Sex: Female

DRUGS (42)
  1. ZOMETA [Suspect]
     Indication: OSTEOPOROSIS
  2. MORPHINE SULFATE [Concomitant]
  3. HEPARIN [Concomitant]
     Dosage: 5000 U, EVERY 8 HOURS
     Route: 058
  4. ZOLPIDEM TARTRATE [Concomitant]
     Dosage: 10 MG, QD AT BED TIME AS NEEDED
     Route: 048
     Dates: start: 20040527, end: 20050323
  5. TETANUS TOXOID [Concomitant]
     Dosage: 0.5 ML, ONCE
     Route: 030
  6. MOTRIN IB [Concomitant]
     Dosage: 800 MG, UNK
  7. CIPROFLOXACIN [Concomitant]
  8. DULCOLAX [Concomitant]
  9. CLINDAMYCIN [Concomitant]
     Route: 017
     Dates: start: 20060929
  10. CEFOTETAN [Concomitant]
  11. ZOMETA [Suspect]
     Indication: BONE LOSS
     Dates: start: 20040601, end: 20060907
  12. LETROZOLE [Concomitant]
     Dates: start: 20060410, end: 20101201
  13. LEXAPRO [Concomitant]
  14. DOXORUBICIN HCL [Concomitant]
     Dates: start: 20110215
  15. INSULIN ASPART [Concomitant]
     Route: 058
  16. DIPHENHYDRAMINE HCL [Concomitant]
     Dosage: 25 MG, EVERY 4 HOURS
     Route: 048
     Dates: start: 20041014, end: 20050818
  17. DIPHTHERIA TOXOID [Concomitant]
     Dosage: 0.5 ML, ONCE/SINGLE
     Route: 030
  18. FULVESTRANT [Concomitant]
     Dates: start: 20050804, end: 20070501
  19. PACLITAXEL [Concomitant]
     Dates: start: 20090623, end: 20100405
  20. DILAUDID [Concomitant]
     Dosage: 2 MG, EVERY 6 HOURS
  21. DECADRON [Concomitant]
     Route: 042
  22. FAMOTIDINE [Concomitant]
     Dates: start: 20041014
  23. MYLANTA [Concomitant]
  24. FEMARA [Concomitant]
     Dates: start: 20050414
  25. EXEMESTANE [Concomitant]
     Dates: start: 20070701, end: 20090818
  26. PROMETHAZINE HYDROCHLORIDE [Concomitant]
  27. TAMOXIFEN CITRATE [Concomitant]
     Dates: start: 20040601
  28. HYZAAR [Concomitant]
  29. COZAAR [Concomitant]
  30. NALOXONE [Concomitant]
     Route: 042
     Dates: start: 20041014
  31. CITALOPRAM HYDROBROMIDE [Concomitant]
  32. AROMASIN [Concomitant]
  33. BEVACIZUMAB [Concomitant]
  34. EMLA [Concomitant]
  35. METFORMIN HCL [Concomitant]
  36. CYMBALTA [Concomitant]
  37. KEFLEX [Concomitant]
  38. ATIVAN [Concomitant]
  39. AMOXICILLIN [Concomitant]
  40. AMOXICILLIN AND CLAVULANATE POTASSIUM [Concomitant]
     Dosage: 500 MG, BID
     Route: 048
  41. METOCLOPRAMIDE [Concomitant]
     Dosage: 10 MG, Q4H PRN
     Route: 042
     Dates: start: 20040527
  42. DEXAMETHASONE [Concomitant]

REACTIONS (86)
  - INJURY [None]
  - BASAL CELL CARCINOMA [None]
  - INFECTIOUS PERITONITIS [None]
  - ARTERIOSCLEROSIS CORONARY ARTERY [None]
  - HYPOAESTHESIA [None]
  - OBESITY [None]
  - WEIGHT DECREASED [None]
  - DYSGEUSIA [None]
  - MUSCLE SPASMS [None]
  - NAIL AVULSION [None]
  - ONYCHOMYCOSIS [None]
  - METASTASES TO LIVER [None]
  - HEPATIC LESION [None]
  - PATHOLOGICAL FRACTURE [None]
  - SLEEP APNOEA SYNDROME [None]
  - METASTASES TO PELVIS [None]
  - NEUROFIBROMA [None]
  - HYPERTENSION [None]
  - SEROSITIS [None]
  - PAIN IN EXTREMITY [None]
  - SNORING [None]
  - VOMITING [None]
  - GINGIVAL SWELLING [None]
  - UTERINE CERVICAL SQUAMOUS METAPLASIA [None]
  - HYPERTRIGLYCERIDAEMIA [None]
  - LUNG NEOPLASM [None]
  - INTESTINAL PERFORATION [None]
  - NECK PAIN [None]
  - FEMUR FRACTURE [None]
  - THORACIC VERTEBRAL FRACTURE [None]
  - ARTHRALGIA [None]
  - EYELID PTOSIS [None]
  - CHOLELITHIASIS [None]
  - SUBCUTANEOUS ABSCESS [None]
  - HYPOKALAEMIA [None]
  - ABDOMINAL DISTENSION [None]
  - NAUSEA [None]
  - PURULENT DISCHARGE [None]
  - METASTASES TO BONE [None]
  - BONE PAIN [None]
  - GRANULOMA [None]
  - LEIOMYOMA [None]
  - MEDULLOBLASTOMA [None]
  - MUSCULOSKELETAL STIFFNESS [None]
  - ABDOMINAL PAIN [None]
  - SWELLING FACE [None]
  - DYSPHONIA [None]
  - OSTEONECROSIS OF JAW [None]
  - OROPHARYNGEAL PAIN [None]
  - FOOT FRACTURE [None]
  - SPINAL OSTEOARTHRITIS [None]
  - OSTEOLYSIS [None]
  - DIABETES MELLITUS [None]
  - DEPRESSION [None]
  - CERVICITIS [None]
  - ABDOMINAL HERNIA [None]
  - GOITRE [None]
  - CUTIS LAXA [None]
  - HAEMATURIA [None]
  - DYSURIA [None]
  - PARAESTHESIA [None]
  - FATIGUE [None]
  - COUGH [None]
  - EXPOSED BONE IN JAW [None]
  - CHEST PAIN [None]
  - OSTEOARTHRITIS [None]
  - EPISTAXIS [None]
  - JAUNDICE [None]
  - SPLENOMEGALY [None]
  - URINARY TRACT INFECTION [None]
  - DEHYDRATION [None]
  - LACERATION [None]
  - PAIN [None]
  - NEOPLASM MALIGNANT [None]
  - OSTEOPENIA [None]
  - HYPERGLYCAEMIA [None]
  - PERSONALITY CHANGE [None]
  - BONE LESION [None]
  - ARTHROPATHY [None]
  - HISTOPLASMOSIS [None]
  - RENAL CYST [None]
  - BACK PAIN [None]
  - MUSCULAR WEAKNESS [None]
  - NIGHT SWEATS [None]
  - MUSCLE TWITCHING [None]
  - HOT FLUSH [None]
